FAERS Safety Report 8190009-7 (Version None)
Quarter: 2012Q1

REPORT INFORMATION
  Report Type: 
  Country: None (occurrence: None)
  Receive Date: 20120307
  Receipt Date: 20120228
  Transmission Date: 20120608
  Serious: Yes (Death, Other)
  Sender: FDA-Public Use
  Company Number: US-JNJFOC-20120301584

PATIENT

DRUGS (10)
  1. DOXORUBICIN HCL [Suspect]
     Indication: HEPATIC NEOPLASM MALIGNANT
     Route: 042
  2. ETHIODIZED OIL [Suspect]
     Indication: HEPATIC NEOPLASM MALIGNANT
     Route: 065
  3. DOXORUBICIN HCL [Suspect]
     Indication: HEPATIC FUNCTION ABNORMAL
     Route: 042
  4. MITOMYCIN [Suspect]
     Indication: HEPATIC NEOPLASM MALIGNANT
     Route: 065
  5. ETHIODIZED OIL [Suspect]
     Indication: HEPATIC FUNCTION ABNORMAL
     Route: 065
  6. GELATIN [Suspect]
     Indication: HEPATIC FUNCTION ABNORMAL
     Route: 065
  7. CISPLATIN [Suspect]
     Indication: HEPATIC FUNCTION ABNORMAL
     Route: 065
  8. GELATIN [Suspect]
     Indication: HEPATIC NEOPLASM MALIGNANT
     Route: 065
  9. MITOMYCIN [Suspect]
     Indication: HEPATIC FUNCTION ABNORMAL
     Route: 065
  10. CISPLATIN [Suspect]
     Indication: HEPATIC NEOPLASM MALIGNANT
     Route: 065

REACTIONS (2)
  - HEPATOTOXICITY [None]
  - BLOOD CREATININE INCREASED [None]
